FAERS Safety Report 26041099 (Version 1)
Quarter: 2025Q4

REPORT INFORMATION
  Report Type: Spontaneous
  Country: EU (occurrence: EU)
  Receive Date: 20251113
  Receipt Date: 20251113
  Transmission Date: 20260118
  Serious: Yes (Other)
  Sender: CSL BEHRING
  Company Number: EU-BEH-2025223406

PATIENT
  Sex: Male

DRUGS (1)
  1. PRIVIGEN [Suspect]
     Active Substance: HUMAN IMMUNOGLOBULIN G
     Indication: Chronic inflammatory demyelinating polyradiculoneuropathy
     Dosage: 40 G X4 CYCLE
     Route: 065
     Dates: start: 20250915, end: 20250919

REACTIONS (19)
  - Pulmonary embolism [Unknown]
  - Cutaneous vasculitis [Recovered/Resolved]
  - Renal impairment [Unknown]
  - Petechiae [Recovered/Resolved]
  - Vasculitis [Unknown]
  - Headache [Unknown]
  - Nausea [Unknown]
  - Vomiting [Unknown]
  - Oedema peripheral [Unknown]
  - Oedema peripheral [Unknown]
  - Rash [Recovered/Resolved]
  - Rash [Recovered/Resolved]
  - C-reactive protein increased [Unknown]
  - Cough [Unknown]
  - Blood creatinine abnormal [Unknown]
  - Fibrin D dimer increased [Unknown]
  - Superficial inflammatory dermatosis [Recovered/Resolved]
  - Therapy cessation [Unknown]
  - Glomerular filtration rate decreased [Unknown]

NARRATIVE: CASE EVENT DATE: 20250919
